FAERS Safety Report 19079397 (Version 1)
Quarter: 2021Q1

REPORT INFORMATION
  Report Type: Other
  Country: FR (occurrence: FR)
  Receive Date: 20210331
  Receipt Date: 20210331
  Transmission Date: 20210420
  Serious: Yes (Other)
  Sender: FDA-Public Use
  Company Number: FR-VALIDUS PHARMACEUTICALS LLC-FR-2021VAL000283

PATIENT
  Age: 31 Year
  Sex: Male

DRUGS (6)
  1. PANTOPRAZOLE [Suspect]
     Active Substance: PANTOPRAZOLE
     Indication: PROPHYLAXIS
     Dosage: 20 MG, QD
     Route: 048
     Dates: start: 20181119, end: 20181126
  2. SULFAMETHOXAZOLE AND TRIMETHOPRIM [Suspect]
     Active Substance: SULFAMETHOXAZOLE\TRIMETHOPRIM
     Indication: HYPERTHERMIA
     Dosage: 12 DF, QD
     Route: 042
     Dates: start: 20181119, end: 20181122
  3. SULFAMETHOXAZOLE AND TRIMETHOPRIM [Suspect]
     Active Substance: SULFAMETHOXAZOLE\TRIMETHOPRIM
     Dosage: 1 DF, QD
     Route: 048
     Dates: start: 20181122, end: 20181126
  4. IVERMECTIN. [Suspect]
     Active Substance: IVERMECTIN
     Indication: ACARODERMATITIS
     Dosage: 4 DF, UNK
     Route: 048
     Dates: start: 20181120
  5. AZITHROMYCIN MONOHYDRATE. [Suspect]
     Active Substance: AZITHROMYCIN MONOHYDRATE
     Indication: HYPERTHERMIA
     Dosage: 250 MG, QD
     Route: 048
     Dates: start: 20181119, end: 20181124
  6. CEFOTAXIME SODIUM [Suspect]
     Active Substance: CEFOTAXIME SODIUM
     Indication: HYPERTHERMIA
     Dosage: 6 G, QD
     Route: 042
     Dates: start: 20181119, end: 20181126

REACTIONS (2)
  - Rash erythematous [Recovering/Resolving]
  - Pruritus [Recovered/Resolved]

NARRATIVE: CASE EVENT DATE: 20181126
